FAERS Safety Report 23450652 (Version 3)
Quarter: 2024Q1

REPORT INFORMATION
  Report Type: Report from Study
  Country: US (occurrence: US)
  Receive Date: 20240129
  Receipt Date: 20240319
  Transmission Date: 20240410
  Serious: No
  Sender: FDA-Public Use
  Company Number: US-DECIPHERA PHARMACEUTICALS LLC-2024US000048

PATIENT
  Age: 65 Year
  Sex: Female

DRUGS (2)
  1. QINLOCK [Suspect]
     Active Substance: RIPRETINIB
     Indication: Gastrointestinal stromal tumour
     Dosage: 150 MILLIGRAM, QD
     Route: 048
     Dates: start: 202311
  2. QINLOCK [Suspect]
     Active Substance: RIPRETINIB
     Dosage: 150 MILLIGRAM, QD
     Route: 048

REACTIONS (7)
  - Hyperkeratosis [Unknown]
  - Nasopharyngitis [Unknown]
  - Asthenia [Unknown]
  - Alopecia [Unknown]
  - Fatigue [Unknown]
  - Muscle spasms [Unknown]
  - Product dose omission in error [Unknown]
